FAERS Safety Report 9520511 (Version 1)
Quarter: 2013Q3

REPORT INFORMATION
  Report Type: Spontaneous
  Country: DE (occurrence: DE)
  Receive Date: 20130913
  Receipt Date: 20130913
  Transmission Date: 20140515
  Serious: Yes (Other)
  Sender: FDA-Public Use
  Company Number: DE-MYLANLABS-2013S1019797

PATIENT
  Age: 28 Year
  Sex: Male

DRUGS (4)
  1. IFOSFAMIDE [Suspect]
     Indication: NEUROENDOCRINE TUMOUR
     Route: 065
  2. PACLITAXEL [Suspect]
     Indication: NEUROENDOCRINE TUMOUR
     Route: 065
  3. CARBOPLATIN [Suspect]
     Indication: NEUROENDOCRINE TUMOUR
     Route: 065
  4. ETOPOSIDE [Suspect]
     Indication: NEUROENDOCRINE TUMOUR
     Route: 065

REACTIONS (2)
  - Convulsion [Unknown]
  - Mucosal inflammation [Unknown]
